FAERS Safety Report 12117882 (Version 6)
Quarter: 2016Q3

REPORT INFORMATION
  Report Type: Report from Study
  Country: AU (occurrence: AU)
  Receive Date: 20160226
  Receipt Date: 20160701
  Transmission Date: 20161109
  Serious: Yes (Other)
  Sender: FDA-Public Use
  Company Number: AU-009507513-1602AUS005659

PATIENT
  Age: 60 Year
  Sex: Female

DRUGS (3)
  1. PEMBROLIZUMAB. [Suspect]
     Active Substance: PEMBROLIZUMAB
     Indication: METASTATIC MALIGNANT MELANOMA
     Dosage: 140 MG, Q3W
     Route: 042
     Dates: start: 20140812, end: 20160108
  2. ATORVASTATIN [Concomitant]
     Active Substance: ATORVASTATIN
     Dosage: 20 MG, QD
  3. LEVOTHYROXINE SODIUM. [Concomitant]
     Active Substance: LEVOTHYROXINE SODIUM
     Dosage: THYROXINE 100 MCG MON/WED/FRIDAY, 159 MCG TUE/THURS/SAT/SUNDAY
     Route: 048

REACTIONS (2)
  - Myelitis transverse [Recovering/Resolving]
  - Ataxia [Recovering/Resolving]
